FAERS Safety Report 8916202 (Version 1)
Quarter: 2012Q4

REPORT INFORMATION
  Report Type: 
  Country: JP (occurrence: JP)
  Receive Date: 20121120
  Receipt Date: 20121120
  Transmission Date: 20130627
  Serious: Yes (Other)
  Sender: FDA-Public Use
  Company Number: JP-GLAXOSMITHKLINE-B0840602A

PATIENT
  Age: 52 Year
  Sex: Female
  Weight: 50 kg

DRUGS (10)
  1. PAXIL [Suspect]
     Indication: DEPRESSION
     Dosage: 25MG Per day
     Route: 048
     Dates: start: 20120725, end: 20121026
  2. PAXIL [Suspect]
     Indication: DEPRESSION
     Dosage: 20MG Per day
     Route: 048
     Dates: start: 2010, end: 20120724
  3. HOKUNALIN [Suspect]
     Indication: ASTHMA
     Dosage: 2MG Per day
     Route: 062
     Dates: start: 20120130
  4. THEODUR [Concomitant]
     Indication: ASTHMA
     Dosage: 200MG Twice per day
     Route: 048
     Dates: start: 20120130
  5. RESPLEN [Concomitant]
     Indication: ASTHMA
     Dosage: 20MG Twice per day
     Route: 048
     Dates: start: 20120309
  6. MUCOSOLVAN [Concomitant]
     Indication: ASTHMA
     Dosage: 45MG Per day
     Route: 048
     Dates: start: 20120207
  7. CRESTOR [Concomitant]
     Indication: DYSLIPIDAEMIA
     Dosage: 5MG Per day
     Route: 048
  8. LIPIDIL [Concomitant]
     Indication: DYSLIPIDAEMIA
     Dosage: 80MG Twice per day
     Route: 048
  9. EDIROL [Concomitant]
     Indication: OSTEOPOROSIS
     Dosage: .75MCG Per day
     Route: 048
  10. WYPAX [Concomitant]
     Indication: DEPRESSION
     Dosage: 1MG Twice per day
     Route: 048

REACTIONS (4)
  - Serotonin syndrome [Recovered/Resolved]
  - Neuroleptic malignant syndrome [Recovered/Resolved]
  - Tremor [Recovered/Resolved]
  - Hypoaesthesia [Recovered/Resolved]
